FAERS Safety Report 5244058-9 (Version None)
Quarter: 2007Q1

REPORT INFORMATION
  Report Type: 
  Country: None (occurrence: None)
  Receive Date: 20070222
  Receipt Date: 20070219
  Transmission Date: 20070707
  Serious: Yes (Hospitalization)
  Sender: FDA-Public Use
  Company Number: FRWYE728320FEB07

PATIENT
  Age: 57 Year
  Sex: Female
  Weight: 65 kg

DRUGS (1)
  1. EFFEXOR XR [Suspect]
     Indication: DYSTHYMIC DISORDER
     Dosage: 75 MG TOTAL DAILY
     Route: 048
     Dates: end: 20070126

REACTIONS (5)
  - BLOOD PRESSURE SYSTOLIC INCREASED [None]
  - ELECTROCARDIOGRAM QT PROLONGED [None]
  - FACE INJURY [None]
  - FALL [None]
  - SYNCOPE [None]
